FAERS Safety Report 26121576 (Version 2)
Quarter: 2025Q4

REPORT INFORMATION
  Report Type: Spontaneous
  Country: US (occurrence: US)
  Receive Date: 20251204
  Receipt Date: 20251210
  Transmission Date: 20260118
  Serious: No
  Sender: BIOGEN
  Company Number: US-BIOGEN-2093572

PATIENT
  Age: 61 Year
  Sex: Male

DRUGS (1)
  1. SKYCLARYS [Suspect]
     Active Substance: OMAVELOXOLONE
     Indication: Friedreich^s ataxia
     Dates: start: 20250910

REACTIONS (4)
  - Gastrooesophageal reflux disease [Unknown]
  - Underdose [Unknown]
  - Blood iron decreased [Unknown]
  - Diarrhoea [Unknown]
